FAERS Safety Report 20738158 (Version 16)
Quarter: 2023Q2

REPORT INFORMATION
  Report Type: Other
  Country: TR (occurrence: None)
  Receive Date: 20220422
  Receipt Date: 20230628
  Transmission Date: 20230721
  Serious: Yes (Hospitalization, Other)
  Sender: FDA-Public Use
  Company Number: TR-ROCHE-2935496

PATIENT
  Age: 58 Year
  Sex: Female
  Weight: 72 kg

DRUGS (36)
  1. OCRELIZUMAB [Suspect]
     Active Substance: OCRELIZUMAB
     Indication: Secondary progressive multiple sclerosis
     Dosage: DOSE LAST STUDY DRUG ADMIN PRIOR AE AND SAE: 600 MG, START DATE OF MOST RECENT DOSE OF STUDY DRUG PR
     Route: 042
     Dates: start: 20190307, end: 20190307
  2. PHENIRAMINE [Concomitant]
     Active Substance: PHENIRAMINE
     Dosage: DOSE: 1 AMPULE
     Route: 042
     Dates: start: 20210910, end: 20210910
  3. PHENIRAMINE [Concomitant]
     Active Substance: PHENIRAMINE
     Dosage: 1 AMPULE
     Route: 042
     Dates: start: 20220325, end: 20220325
  4. PHENIRAMINE [Concomitant]
     Active Substance: PHENIRAMINE
     Dosage: 1 AMPULE
     Route: 042
     Dates: start: 20230117, end: 20230117
  5. METHYLPREDNISOLONE [Concomitant]
     Active Substance: METHYLPREDNISOLONE
     Dosage: DOT: 25/MAR/2022
     Route: 042
     Dates: start: 20210910, end: 20210910
  6. METHYLPREDNISOLONE [Concomitant]
     Active Substance: METHYLPREDNISOLONE
     Route: 042
     Dates: start: 20220325, end: 20220325
  7. METHYLPREDNISOLONE [Concomitant]
     Active Substance: METHYLPREDNISOLONE
     Route: 042
     Dates: start: 20230117, end: 20230117
  8. ESOMEPRAZOLE [Concomitant]
     Active Substance: ESOMEPRAZOLE
     Dosage: ONCE BEFORE INFUSION
     Route: 042
     Dates: start: 20210910, end: 20210910
  9. PANTOPRAZOLE [Concomitant]
     Active Substance: PANTOPRAZOLE
     Dosage: NEXT DOSE ON :26/OCT/2022
     Route: 042
     Dates: start: 20220325, end: 20220325
  10. PANTOPRAZOLE [Concomitant]
     Active Substance: PANTOPRAZOLE
     Route: 042
     Dates: start: 20230117, end: 20230117
  11. KARDOZIN [Concomitant]
     Route: 048
     Dates: start: 20220515, end: 20220515
  12. KARDOZIN [Concomitant]
     Route: 048
     Dates: start: 20220516, end: 20220516
  13. KARDOZIN [Concomitant]
     Route: 048
     Dates: start: 20220517, end: 20220522
  14. COMBIVENT [Concomitant]
     Active Substance: ALBUTEROL SULFATE\IPRATROPIUM BROMIDE
     Indication: Adverse event
     Route: 045
     Dates: start: 20220731, end: 20220731
  15. CALCIOSEL [Concomitant]
     Indication: Adverse event
     Route: 042
     Dates: start: 20220731, end: 20220731
  16. METOCLOPRAMIDE [Concomitant]
     Active Substance: METOCLOPRAMIDE
     Indication: Adverse event
     Route: 042
     Dates: start: 20220731, end: 20220731
  17. INFEX (TURKEY) [Concomitant]
     Indication: Adverse event
     Route: 048
     Dates: start: 20211007, end: 20211017
  18. INFEX (TURKEY) [Concomitant]
     Dosage: 03/AUG/2022/22/AUG/2022
     Route: 048
     Dates: start: 20220404, end: 20220420
  19. INFEX (TURKEY) [Concomitant]
     Route: 048
     Dates: start: 20220803, end: 20220822
  20. MONUROL [Concomitant]
     Active Substance: FOSFOMYCIN TROMETHAMINE
     Indication: Adverse event
     Route: 048
     Dates: start: 20220404, end: 20220420
  21. TEGRETOL [Concomitant]
     Active Substance: CARBAMAZEPINE
     Indication: Adverse event
     Route: 048
     Dates: start: 20220809, end: 20220809
  22. TEGRETOL [Concomitant]
     Active Substance: CARBAMAZEPINE
     Route: 048
     Dates: start: 20220805, end: 20220805
  23. TEGRETOL [Concomitant]
     Active Substance: CARBAMAZEPINE
     Route: 048
     Dates: start: 20220806, end: 20220806
  24. TEGRETOL [Concomitant]
     Active Substance: CARBAMAZEPINE
     Route: 048
     Dates: start: 20220807, end: 20220810
  25. NEPITIN [Concomitant]
     Indication: Adverse event
     Route: 048
     Dates: start: 20220809, end: 20220809
  26. NEPITIN [Concomitant]
     Route: 048
     Dates: start: 20220806, end: 20220807
  27. NEPITIN [Concomitant]
     Route: 048
     Dates: start: 20220809, end: 20220810
  28. FOSIT [Concomitant]
     Indication: Adverse event
     Route: 042
     Dates: start: 20220809, end: 20220809
  29. FOSIT [Concomitant]
     Route: 042
     Dates: start: 20220731, end: 20220807
  30. FOSIT [Concomitant]
     Route: 042
     Dates: start: 20220808, end: 20220808
  31. FOSIT [Concomitant]
     Route: 042
     Dates: start: 20220809, end: 20220809
  32. FOSIT [Concomitant]
     Route: 042
     Dates: start: 20220810, end: 20220810
  33. FOSIT [Concomitant]
     Route: 042
     Dates: start: 20220831, end: 20220907
  34. METOPROLOL [Concomitant]
     Active Substance: METOPROLOL
     Indication: Adverse event
     Route: 048
     Dates: start: 20220809, end: 20220809
  35. METOPROLOL [Concomitant]
     Active Substance: METOPROLOL
     Route: 048
     Dates: start: 20220809, end: 20220810
  36. COLEDAN-D3 [Concomitant]
     Route: 048
     Dates: start: 20220404, end: 20220404

REACTIONS (6)
  - Acute kidney injury [Recovered/Resolved]
  - Urinary tract infection [Recovered/Resolved]
  - Vitamin B12 deficiency [Recovering/Resolving]
  - Vitamin D deficiency [Recovering/Resolving]
  - Hyperkalaemia [Recovered/Resolved]
  - Cognitive disorder [Recovered/Resolved]

NARRATIVE: CASE EVENT DATE: 20211005
